FAERS Safety Report 15347167 (Version 1)
Quarter: 2018Q3

REPORT INFORMATION
  Report Type: Spontaneous
  Country: US (occurrence: US)
  Receive Date: 20180828
  Receipt Date: 20180828
  Transmission Date: 20181010
  Serious: No
  Sender: FDA-Public Use
  Company Number: None

PATIENT
  Age: 59 Year
  Sex: Female
  Weight: 58.97 kg

DRUGS (3)
  1. GENERIC ESTRADIOL PATCH 0.05MG [Suspect]
     Active Substance: ESTRADIOL
     Indication: NIGHT SWEATS
     Dosage: ?          OTHER FREQUENCY:2/WK;?
     Route: 062
     Dates: start: 2015, end: 2017
  2. GENERIC ESTRADIOL PATCH 0.05MG [Suspect]
     Active Substance: ESTRADIOL
     Indication: HOT FLUSH
     Dosage: ?          OTHER FREQUENCY:2/WK;?
     Route: 062
     Dates: start: 2015, end: 2017
  3. GENERIC ESTRADIOL PATCH 0.05MG [Suspect]
     Active Substance: ESTRADIOL
     Indication: MENOPAUSAL SYMPTOMS
     Dosage: ?          OTHER FREQUENCY:2/WK;?
     Route: 062
     Dates: start: 2015, end: 2017

REACTIONS (3)
  - Vomiting [None]
  - Rash [None]
  - Breast tenderness [None]
